FAERS Safety Report 6615462-9 (Version None)
Quarter: 2010Q1

REPORT INFORMATION
  Report Type: 
  Country: None (occurrence: None)
  Receive Date: 20100305
  Receipt Date: 20100301
  Transmission Date: 20100710
  Serious: Yes (Other)
  Sender: FDA-Public Use
  Company Number: FR-PFIZER INC-2010001966

PATIENT
  Age: 41 Year
  Sex: Male
  Weight: 72 kg

DRUGS (1)
  1. XALATAN [Suspect]
     Indication: OCULAR HYPERTENSION
     Dosage: 1 DROP PER DAY
     Route: 047
     Dates: start: 20091001

REACTIONS (1)
  - EPILEPSY [None]
